FAERS Safety Report 14326774 (Version 1)
Quarter: 2017Q4

REPORT INFORMATION
  Report Type: Spontaneous
  Country: US (occurrence: US)
  Receive Date: 20171214
  Receipt Date: 20171214
  Transmission Date: 20180321
  Serious: Yes (Hospitalization, Disabling)
  Sender: FDA-Public Use
  Company Number: None

PATIENT
  Age: 29 Year
  Sex: Female
  Weight: 54.43 kg

DRUGS (2)
  1. MIRENA [Suspect]
     Active Substance: LEVONORGESTREL
     Dates: start: 20130831
  2. IBUPROFEN. [Concomitant]
     Active Substance: IBUPROFEN

REACTIONS (13)
  - Menorrhagia [None]
  - Muscle spasms [None]
  - Abdominal pain lower [None]
  - Impaired work ability [None]
  - Visual impairment [None]
  - Anxiety [None]
  - Cervix disorder [None]
  - Device dislocation [None]
  - Uterine cervical pain [None]
  - Migraine [None]
  - Alopecia [None]
  - Acne [None]
  - Vomiting [None]

NARRATIVE: CASE EVENT DATE: 20130831
